FAERS Safety Report 9510581 (Version 1)
Quarter: 2013Q3

REPORT INFORMATION
  Report Type: Spontaneous
  Country: US (occurrence: US)
  Receive Date: 20130909
  Receipt Date: 20130909
  Transmission Date: 20140515
  Serious: Yes (Other)
  Sender: FDA-Public Use
  Company Number: US-GENZYME-FABR-1003563

PATIENT
  Sex: Male

DRUGS (5)
  1. FABRAZYME [Suspect]
     Indication: FABRY^S DISEASE
     Dosage: 90 MG, Q2W
     Route: 042
     Dates: start: 200309
  2. FABRAZYME [Suspect]
     Dosage: 90 MG, Q2W
     Route: 042
     Dates: start: 201210
  3. TEGRETOL [Concomitant]
     Indication: MUSCLE SPASMS
     Dosage: 400 MG, BID
     Route: 065
  4. TEGRETOL [Concomitant]
     Indication: MUSCLE SPASMS
  5. SYNTHROID [Concomitant]
     Indication: PRODUCT USED FOR UNKNOWN INDICATION
     Dosage: 100 MCG, UNK
     Route: 065

REACTIONS (6)
  - Haematochezia [Unknown]
  - Weight decreased [Unknown]
  - Pain [Unknown]
  - Nausea [Unknown]
  - Vomiting [Unknown]
  - Pyrexia [Unknown]
